FAERS Safety Report 12541635 (Version 1)
Quarter: 2016Q3

REPORT INFORMATION
  Report Type: Spontaneous
  Country: US (occurrence: US)
  Receive Date: 20160708
  Receipt Date: 20160708
  Transmission Date: 20161109
  Serious: No
  Sender: FDA-Public Use
  Company Number: US-PFM-US-2016-1631

PATIENT
  Sex: Female

DRUGS (1)
  1. HEMANGEOL [Suspect]
     Active Substance: PROPRANOLOL HYDROCHLORIDE
     Indication: HAEMANGIOMA
     Dosage: UNK
     Route: 048
     Dates: end: 201604

REACTIONS (3)
  - Drug administered to patient of inappropriate age [Unknown]
  - Eczema [None]
  - Off label use [None]

NARRATIVE: CASE EVENT DATE: 2016
